FAERS Safety Report 10068044 (Version 1)
Quarter: 2014Q2

REPORT INFORMATION
  Report Type: Spontaneous
  Country: DK (occurrence: US)
  Receive Date: 20140409
  Receipt Date: 20140409
  Transmission Date: 20141212
  Serious: Yes (Hospitalization)
  Sender: FDA-Public Use
  Company Number: US-FRI-1000066235

PATIENT
  Age: 47 Year
  Sex: Male

DRUGS (9)
  1. ESCITALOPRAM [Suspect]
     Indication: MAJOR DEPRESSION
     Route: 048
     Dates: end: 20140115
  2. ESCITALOPRAM [Suspect]
     Dosage: 20 MG
     Route: 048
     Dates: start: 20140116, end: 20140321
  3. LUAF41156 [Suspect]
     Indication: MAJOR DEPRESSION
     Dosage: UNK
     Route: 048
     Dates: start: 20140109, end: 20140321
  4. BLINDED-PLACEBO [Suspect]
     Indication: MAJOR DEPRESSION
     Route: 048
     Dates: start: 20140109, end: 20140321
  5. BLINDED SEREQUEL XR [Suspect]
     Indication: MAJOR DEPRESSION
     Dosage: UNK
     Route: 048
     Dates: start: 20140109, end: 20140321
  6. PRAZOSIN HYDROCHLORIDE [Concomitant]
     Indication: NIGHTMARE
     Dosage: 6 MG MILLIGRAM(S), QPM
     Route: 048
     Dates: start: 201111
  7. LORATADINE [Concomitant]
     Indication: SEASONAL ALLERGY
     Dosage: 10 MG MILLIGRAM(S), PRN
     Route: 048
     Dates: start: 201101
  8. FLUNISOLIDE ACETATE [Concomitant]
     Indication: SEASONAL ALLERGY
     Dosage: 0.025 % PERCENT, UNK
     Dates: start: 201101
  9. LISINOPRIL/HCTZ [Concomitant]
     Indication: HYPERTENSION
     Dosage: 20/25 MG MILLIGRAM(S), QD
     Route: 048
     Dates: start: 201309

REACTIONS (1)
  - Tendon rupture [Recovered/Resolved]
